FAERS Safety Report 21499625 (Version 1)
Quarter: 2022Q4

REPORT INFORMATION
  Report Type: Spontaneous
  Country: US (occurrence: None)
  Receive Date: 20221024
  Receipt Date: 20221024
  Transmission Date: 20230113
  Serious: Yes (Other)
  Sender: FDA-Public Use
  Company Number: None

PATIENT
  Age: 70 Year
  Sex: Female
  Weight: 135 kg

DRUGS (7)
  1. SPIRIVA RESPIMAT [Suspect]
     Active Substance: TIOTROPIUM BROMIDE
     Indication: Asthma
     Dosage: OTHER QUANTITY : 2 PUFF(S);?FREQUENCY : DAILY;?
     Route: 055
     Dates: start: 20220919, end: 20221007
  2. ATORVASTATIN [Concomitant]
     Active Substance: ATORVASTATIN
  3. ELIQUIS [Concomitant]
     Active Substance: APIXABAN
  4. FUROSEMIDE [Concomitant]
     Active Substance: FUROSEMIDE
  5. LEVOTHYROXINE [Concomitant]
     Active Substance: LEVOTHYROXINE
  6. LISNINOPRIL [Concomitant]
  7. FISH OIL [Concomitant]
     Active Substance: FISH OIL

REACTIONS (11)
  - Rash pruritic [None]
  - Nausea [None]
  - Headache [None]
  - Dyspepsia [None]
  - Lacrimation increased [None]
  - Eye pruritus [None]
  - Rhinitis [None]
  - Throat tightness [None]
  - Dyspnoea [None]
  - Swelling [None]
  - Aphonia [None]

NARRATIVE: CASE EVENT DATE: 20221001
